FAERS Safety Report 8618558 (Version 2)
Quarter: 2014Q1

REPORT INFORMATION
  Report Type: Spontaneous
  Country: US (occurrence: None)
  Receive Date: 20120323
  Receipt Date: 20130305
  Transmission Date: 20141002
  Serious: Yes (Other)
  Sender: FDA-Public Use
  Company Number: 163-21880-11121955

PATIENT
  Age: 67 Year
  Sex: Female
  Weight: 63.5 kg

DRUGS (13)
  1. REVLIMID [Suspect]
     Indication: PLASMA CELL MYELOMA
     Dosage: 10 MG, DAILY X 14 DAYS, PO
     Route: 048
     Dates: start: 20111117
  2. EVISTA [Concomitant]
  3. GLIPIZIDE [Concomitant]
  4. HUMALOG [Concomitant]
  5. METFORMIN HYDROCHLORIDE [Concomitant]
  6. OMEPRAZOLE [Concomitant]
  7. ONDANSETRON [Concomitant]
  8. OXYCODONE (OXYCODONE) [Concomitant]
  9. SERAQUIL (QUETIAPINE FUMARATE) [Concomitant]
  10. TRICOR [Concomitant]
  11. VELCADE [Concomitant]
  12. VENLAFAXINE [Concomitant]
  13. HUMULIN N [Concomitant]

REACTIONS (4)
  - Thrombocytopenia [None]
  - Urinary tract infection [None]
  - Diarrhoea [None]
  - Anaemia [None]
